FAERS Safety Report 15576843 (Version 1)
Quarter: 2018Q4

REPORT INFORMATION
  Report Type: Spontaneous
  Country: ZA (occurrence: ZA)
  Receive Date: 20181101
  Receipt Date: 20181101
  Transmission Date: 20190205
  Serious: Yes (Other)
  Sender: FDA-Public Use
  Company Number: ZA-GLAXOSMITHKLINE-ZA2018048219

PATIENT

DRUGS (12)
  1. CATAFLAM [Suspect]
     Active Substance: DICLOFENAC POTASSIUM
     Indication: ARTHRALGIA
  2. GLUCOPHAGE [Concomitant]
     Active Substance: METFORMIN HYDROCHLORIDE
     Indication: PRODUCT USED FOR UNKNOWN INDICATION
     Dosage: 500 MG, QD
     Route: 065
  3. CATAFLAM [Suspect]
     Active Substance: DICLOFENAC POTASSIUM
     Indication: OSTEOARTHRITIS
     Dosage: 50 MG, UNK
     Route: 048
  4. ASPAVOR [Concomitant]
     Active Substance: ATORVASTATIN
     Dosage: 80 UNK, UNK
     Route: 065
  5. ARTHRO (DICLOFENAC SODIUM) [Concomitant]
     Active Substance: DICLOFENAC SODIUM
     Indication: OSTEOARTHRITIS
     Dosage: 2.5 MG, QD
     Route: 065
  6. ERGOCALCIFEROL (VITAMIN D) [Concomitant]
     Active Substance: ERGOCALCIFEROL
     Indication: PRODUCT USED FOR UNKNOWN INDICATION
     Dosage: 50000 U, QW
     Route: 065
  7. ASPIRIN. [Concomitant]
     Active Substance: ASPIRIN
     Indication: PRODUCT USED FOR UNKNOWN INDICATION
     Dosage: 0.5 DF, QD
     Route: 065
  8. ZESTORETIC [Concomitant]
     Active Substance: HYDROCHLOROTHIAZIDE\LISINOPRIL
     Indication: HYPERTENSION
     Dosage: 10 MG, QD
     Route: 065
  9. PURICOS [Concomitant]
     Active Substance: ALLOPURINOL
     Indication: GOUT
     Dosage: 300 MG, QD
     Route: 065
  10. ZOLPIDEM [Concomitant]
     Active Substance: ZOLPIDEM\ZOLPIDEM TARTRATE
     Indication: INSOMNIA
     Dosage: 7.5 MG, UNK NOCTE
     Route: 065
  11. GLUCOPHAGE [Concomitant]
     Active Substance: METFORMIN HYDROCHLORIDE
     Dosage: 500 MG, BID
     Route: 065
  12. ASPAVOR [Concomitant]
     Active Substance: ATORVASTATIN
     Indication: HYPOCHOLESTEROLAEMIA
     Dosage: 10 MG, QD
     Route: 065

REACTIONS (33)
  - Heart rate irregular [Recovering/Resolving]
  - Glucose tolerance impaired [Unknown]
  - Ventricular tachycardia [Unknown]
  - Dizziness [Recovering/Resolving]
  - Acute coronary syndrome [Unknown]
  - Chest discomfort [Recovered/Resolved]
  - Fibrin D dimer increased [Unknown]
  - Leukocytosis [Unknown]
  - Platelet aggregation [Unknown]
  - Arteriospasm coronary [Unknown]
  - Dyspnoea [Unknown]
  - Glycosylated haemoglobin increased [Unknown]
  - PO2 decreased [Unknown]
  - Procalcitonin increased [Unknown]
  - Embolism [Unknown]
  - Pleuritic pain [Unknown]
  - Hypotension [Unknown]
  - Troponin T increased [Unknown]
  - Myocardial necrosis marker increased [Unknown]
  - Exercise tolerance decreased [Unknown]
  - Pallor [Unknown]
  - Orthostatic hypotension [Unknown]
  - C-reactive protein increased [Unknown]
  - Pneumothorax [Unknown]
  - Blood fibrinogen increased [Unknown]
  - Low density lipoprotein increased [Unknown]
  - Brain natriuretic peptide increased [Unknown]
  - Pulmonary thrombosis [Unknown]
  - Lung disorder [Unknown]
  - Pyrexia [Unknown]
  - Snoring [Unknown]
  - Acute myocardial infarction [Unknown]
  - Blood cholesterol increased [Unknown]

NARRATIVE: CASE EVENT DATE: 20180204
